FAERS Safety Report 8502794-2 (Version None)
Quarter: 2012Q3

REPORT INFORMATION
  Report Type: 
  Country: None (occurrence: None)
  Receive Date: 20120705
  Receipt Date: 20120705
  Transmission Date: 20120928
  Serious: Yes (Other)
  Sender: FDA-Public Use
  Company Number: None

PATIENT
  Age: 52 Year
  Sex: Female
  Weight: 63.5036 kg

DRUGS (1)
  1. MALARONE [Suspect]
     Indication: MALARIA PROPHYLAXIS
     Dosage: 1 TABLET PER DAY DAILY PO
     Route: 048
     Dates: start: 20120411, end: 20120419

REACTIONS (9)
  - HEADACHE [None]
  - MIGRAINE [None]
  - VOMITING [None]
  - VISION BLURRED [None]
  - VISUAL ACUITY REDUCED [None]
  - EYE DISORDER [None]
  - INFLUENZA LIKE ILLNESS [None]
  - NAUSEA [None]
  - PHOTOPSIA [None]
